FAERS Safety Report 15299704 (Version 1)
Quarter: 2018Q4

REPORT INFORMATION
  Report Type: Spontaneous
  Country: NL (occurrence: NL)
  Receive Date: 20180821
  Receipt Date: 20180821
  Transmission Date: 20190204
  Serious: Yes (Death, Other)
  Sender: FDA-Public Use
  Company Number: NL-TEVA-2018-NL-944532

PATIENT
  Age: 67 Year
  Sex: Female
  Weight: 75.5 kg

DRUGS (13)
  1. OXAZEPAM TABLET 10MG [Concomitant]
     Dosage: IF NECESSARY, 10 MILLIGRAMS ONCE A DAY
  2. PACLITAXEL OPLOSSING VOOR INFUUS, 6 MG/ML (MILLIGRAM PER MILLILITER) [Suspect]
     Active Substance: PACLITAXEL
     Indication: BREAST CANCER METASTATIC
     Dosage: 129 MILLIGRAM DAILY; (IV), 1 X PER DAY
     Route: 065
     Dates: start: 201807
  3. MULTIVITAMINE VOOR HAEMODIALYSE [Concomitant]
     Dosage: 1 DOSAGE FORMS DAILY; 1XPER DAY 1 PIECE IS CHANGED
  4. SEVELAMEER TABLET 800MG (CARBONAAT) [Concomitant]
     Dosage: 1600 MILLIGRAM DAILY; 3 X PER DAY 1600 MILLIGRAM
     Route: 065
  5. TAUROLOCK UROKINASE 25000IE POEDER + CLASSIC OPL, OPVULVOLUME [Concomitant]
     Dosage: 25000IE
     Route: 065
  6. ARANESP  150 INJVLST 500MCG/ML WWSP 0,3ML [Concomitant]
     Dosage: 150MCG ONCE A WEEK
  7. OXYCODON TABLET 10 MG (KORTWERKEND) [Concomitant]
     Dosage: 10 MILLIGRAM, IF NECESSARY 6 X PER DAY 10 MILLIGRAM MAXIMUM 6X DAILY
  8. LORMETAZEPAM TABLET 2MG [Concomitant]
     Dosage: 2 MILLIGRAM DAILY;
  9. QUETIAPINE TABLET MGA 300MG [Concomitant]
     Dosage: 300 MILLIGRAM DAILY;
  10. NADROPARINE 5700 9500IE/ML WWSP 0,6ML(FRAXIPARINE), [Concomitant]
     Dosage: 1 DOSAGE FORMS, AT START DIALYSIS 0.6 ML, ONLY ADMINISTER ON DIALYSIS DAYS
  11. OXYCODON TABLET MGA   5MG (LANGWERKEND) [Concomitant]
     Dosage: 10 MILLIGRAM DAILY;
  12. ALTEPLASE INFUSIEPOEDER 20MG FL, [Concomitant]
     Dosage: 1 DOSAGE FORMS, AT CENTER DIALYSIS 2.3 / 2.4 ML IN TESIOCATHETER CALCULATED
  13. LEVOMEPROMAZINE TABLET  25MG [Concomitant]
     Dosage: 12 MILLIGRAM DAILY; 1 X PER DAY 12.5 MILLIGRAMS

REACTIONS (2)
  - Febrile neutropenia [Unknown]
  - Colitis [Unknown]

NARRATIVE: CASE EVENT DATE: 20180716
